FAERS Safety Report 12406916 (Version 1)
Quarter: 2016Q2

REPORT INFORMATION
  Report Type: Report from Study
  Country: KR (occurrence: KR)
  Receive Date: 20160526
  Receipt Date: 20160526
  Transmission Date: 20160815
  Serious: Yes (Other)
  Sender: FDA-Public Use
  Company Number: KR-ASTELLAS-2016US020348

PATIENT
  Age: 53 Year
  Sex: Female

DRUGS (4)
  1. ERLOTINIB [Suspect]
     Active Substance: ERLOTINIB
     Route: 048
     Dates: start: 20090429, end: 20090728
  2. SORAFENIB [Suspect]
     Active Substance: SORAFENIB
     Indication: NON-SMALL CELL LUNG CANCER
     Route: 048
     Dates: start: 20090413, end: 20090422
  3. ERLOTINIB [Suspect]
     Active Substance: ERLOTINIB
     Indication: NON-SMALL CELL LUNG CANCER
     Dosage: 150 MG, ONCE DAILY [28 DAYS (CYCLE 1)]
     Route: 048
     Dates: start: 20090413, end: 20090422
  4. SORAFENIB [Suspect]
     Active Substance: SORAFENIB
     Route: 048
     Dates: start: 20090429, end: 20090728

REACTIONS (5)
  - Aspartate aminotransferase increased [Unknown]
  - Neutrophil count decreased [Unknown]
  - Drug-induced liver injury [Unknown]
  - Blood bilirubin increased [Unknown]
  - Alanine aminotransferase increased [Unknown]
